FAERS Safety Report 18950653 (Version 1)
Quarter: 2021Q1

REPORT INFORMATION
  Report Type: Spontaneous
  Country: US (occurrence: US)
  Receive Date: 20210228
  Receipt Date: 20210228
  Transmission Date: 20210420
  Serious: No
  Sender: FDA-Public Use
  Company Number: US-ROCHE-2682634

PATIENT
  Sex: Female
  Weight: 74 kg

DRUGS (21)
  1. XOLAIR [Suspect]
     Active Substance: OMALIZUMAB
  2. XOLAIR [Suspect]
     Active Substance: OMALIZUMAB
  3. OMEGA?3 ACIDS [Concomitant]
     Active Substance: OMEGA-3 FATTY ACIDS
     Dosage: FORM STRENGTHS: 235 MG, 90 MG, 597 MG
     Route: 048
  4. FLONASE [Concomitant]
     Active Substance: FLUTICASONE PROPIONATE
  5. XOLAIR [Suspect]
     Active Substance: OMALIZUMAB
  6. XOLAIR [Suspect]
     Active Substance: OMALIZUMAB
  7. ALLEGRA [Concomitant]
     Active Substance: FEXOFENADINE HYDROCHLORIDE
     Indication: HYPERSENSITIVITY
     Dates: start: 20170315
  8. PROGESTERONE. [Concomitant]
     Active Substance: PROGESTERONE
     Dosage: START DATE: A LITTLE OVER A MONTH AGO
     Route: 065
  9. AZELASTINE. [Concomitant]
     Active Substance: AZELASTINE HYDROCHLORIDE
     Dosage: 1OR2 SPARY EACH NOSTRIL 1?2 TIMES A DAYS
     Route: 045
     Dates: start: 20170315
  10. XOLAIR [Suspect]
     Active Substance: OMALIZUMAB
     Indication: IDIOPATHIC URTICARIA
     Route: 058
     Dates: start: 20200713
  11. XOLAIR [Suspect]
     Active Substance: OMALIZUMAB
  12. XOLAIR [Suspect]
     Active Substance: OMALIZUMAB
     Route: 058
     Dates: start: 20200917
  13. XOLAIR [Suspect]
     Active Substance: OMALIZUMAB
     Dosage: PATIENT HAS BEEN ON XOLAIR FOR 4 YEARS
     Route: 058
     Dates: start: 20190214
  14. XOLAIR [Suspect]
     Active Substance: OMALIZUMAB
  15. XOLAIR [Suspect]
     Active Substance: OMALIZUMAB
  16. VITAMIN D3 [Concomitant]
     Active Substance: CHOLECALCIFEROL
     Dates: start: 20151231
  17. THYROID [Concomitant]
     Active Substance: LEVOTHYROXINE\LIOTHYRONINE
  18. CLINDAMYCIN HCL [Concomitant]
     Active Substance: CLINDAMYCIN HYDROCHLORIDE
     Route: 048
     Dates: start: 20200513
  19. XOLAIR [Suspect]
     Active Substance: OMALIZUMAB
     Route: 058
     Dates: start: 20200813
  20. TESTOSTERONE. [Concomitant]
     Active Substance: TESTOSTERONE
     Route: 061
  21. XOLAIR [Suspect]
     Active Substance: OMALIZUMAB

REACTIONS (2)
  - Proctitis [Unknown]
  - Rhinitis allergic [Unknown]
